FAERS Safety Report 23518875 (Version 1)
Quarter: 2024Q1

REPORT INFORMATION
  Report Type: Spontaneous
  Country: US (occurrence: None)
  Receive Date: 20240213
  Receipt Date: 20240213
  Transmission Date: 20240409
  Serious: No
  Sender: FDA-Public Use
  Company Number: None

PATIENT
  Sex: Female
  Weight: 0.93 kg

DRUGS (4)
  1. QUETIAPINE [Suspect]
     Active Substance: QUETIAPINE
     Indication: Bipolar disorder
     Dates: start: 20191101
  2. MATERNAL: BUSPIRONE [Concomitant]
  3. MATERNAL: PROPRANOLOL [Concomitant]
  4. MATERNAL: ALPRAZOLAM [Concomitant]

REACTIONS (12)
  - Foetal exposure during pregnancy [None]
  - Retinopathy congenital [None]
  - Urinary tract disorder [None]
  - Infantile apnoea [None]
  - Bronchopulmonary dysplasia [None]
  - Patent ductus arteriosus [None]
  - Hypertension neonatal [None]
  - Anaemia neonatal [None]
  - Osteopenia [None]
  - Plagiocephaly [None]
  - Respiratory distress [None]
  - Inguinal hernia [None]

NARRATIVE: CASE EVENT DATE: 20200509
